FAERS Safety Report 15508452 (Version 1)
Quarter: 2018Q4

REPORT INFORMATION
  Report Type: Spontaneous
  Country: US (occurrence: US)
  Receive Date: 20181016
  Receipt Date: 20181016
  Transmission Date: 20190205
  Serious: No
  Sender: FDA-Public Use
  Company Number: US-GLAXOSMITHKLINE-US2018GSK179825

PATIENT
  Sex: Male

DRUGS (2)
  1. HORMONE THERAPY (NOS) [Concomitant]
  2. AVODART [Suspect]
     Active Substance: DUTASTERIDE
     Indication: HAIR DISORDER
     Dosage: UNK, QD

REACTIONS (2)
  - Blood testosterone abnormal [Unknown]
  - Gynaecomastia [Unknown]
